FAERS Safety Report 5612824-3 (Version None)
Quarter: 2008Q1

REPORT INFORMATION
  Report Type: 
  Country: None (occurrence: None)
  Receive Date: 20080128
  Receipt Date: 20080116
  Transmission Date: 20080703
  Serious: Yes (Life-Threatening, Hospitalization)
  Sender: FDA-Public Use
  Company Number: 2007-04176

PATIENT
  Age: 65 Year
  Sex: Female

DRUGS (10)
  1. VELCADE [Suspect]
     Indication: MULTIPLE MYELOMA
     Dosage: 2.20 MG, INTRAVENOUS
     Route: 042
     Dates: start: 20071023, end: 20071106
  2. DEXAMETHASONE TAB [Suspect]
     Indication: MULTIPLE MYELOMA
     Dosage: 20.00 MG
  3. CIPROFLOXACIN [Suspect]
     Indication: DRUG USE FOR UNKNOWN INDICATION
     Dosage: 750.00 MG
     Dates: start: 20071031, end: 20071105
  4. RIVOTRIL (CLONAZEPAM) DROP [Suspect]
     Indication: DRUG USE FOR UNKNOWN INDICATION
     Dosage: 0.20 MG, ORAL
     Route: 048
     Dates: start: 20071108
  5. ORELOX (CEFPODOZIME PROXETIL) [Concomitant]
  6. VALACYCLOVIR HCL [Concomitant]
  7. OMEPRAZOLE [Concomitant]
  8. LASIX [Concomitant]
  9. NICARDIPINE HCL [Concomitant]
  10. AMITRIPTYLINE HCL [Concomitant]

REACTIONS (6)
  - CONVULSION [None]
  - DIARRHOEA [None]
  - RENAL FAILURE ACUTE [None]
  - RETINAL HAEMORRHAGE [None]
  - RETINAL VEIN THROMBOSIS [None]
  - THROMBOTIC THROMBOCYTOPENIC PURPURA [None]
